FAERS Safety Report 25591608 (Version 1)
Quarter: 2025Q3

REPORT INFORMATION
  Report Type: Report from Study
  Country: US (occurrence: US)
  Receive Date: 20250722
  Receipt Date: 20250722
  Transmission Date: 20251020
  Serious: Yes (Other)
  Sender: ALEXION PHARMACEUTICALS
  Company Number: US-AstraZeneca-CH-00911529A

PATIENT
  Age: 68 Year
  Sex: Male

DRUGS (1)
  1. CALQUENCE [Suspect]
     Active Substance: ACALABRUTINIB
     Indication: Mantle cell lymphoma
     Dosage: 100 MILLIGRAM, BID
     Dates: start: 20231011

REACTIONS (6)
  - Decreased appetite [Unknown]
  - Fatigue [Unknown]
  - Neuropathy peripheral [Unknown]
  - Cough [Unknown]
  - Pain [Unknown]
  - Product dose omission issue [Unknown]
